FAERS Safety Report 17029236 (Version 1)
Quarter: 2019Q4

REPORT INFORMATION
  Report Type: Spontaneous
  Country: US (occurrence: US)
  Receive Date: 20191114
  Receipt Date: 20191114
  Transmission Date: 20200122
  Serious: Yes (Hospitalization, Other)
  Sender: FDA-Public Use
  Company Number: US-DRREDDYS-USA/USA/19/0116035

PATIENT
  Age: 14 Year
  Sex: Male

DRUGS (1)
  1. ISOTRETINOIN NOT OTHERWISE SPECIFIED [Suspect]
     Active Substance: ISOTRETINOIN
     Indication: ACNE

REACTIONS (4)
  - Pulmonary haemorrhage [Recovering/Resolving]
  - Granulomatosis with polyangiitis [Recovering/Resolving]
  - Conjunctivitis [Recovering/Resolving]
  - Glomerulonephritis rapidly progressive [Recovering/Resolving]
